FAERS Safety Report 5093331-6 (Version None)
Quarter: 2006Q3

REPORT INFORMATION
  Report Type: 
  Country: None (occurrence: None)
  Receive Date: 20060828
  Receipt Date: 20060816
  Transmission Date: 20061208
  Serious: Yes (Other)
  Sender: FDA-Public Use
  Company Number: 2006096764

PATIENT
  Age: 81 Year
  Sex: Female
  Weight: 65 kg

DRUGS (6)
  1. AMLODIPINE [Suspect]
     Indication: HYPERTENSION
     Dosage: 10 MG (10 MG, 1 IN 1 D), ORAL
     Route: 048
     Dates: start: 20060606, end: 20060807
  2. BETA BLOCKING AGENTS (BETA BLOCKING AGENTS) [Concomitant]
  3. AMLODIPINE [Concomitant]
  4. BISOPROLOL FUMARATE [Concomitant]
  5. ICAPS (MINERALS NOS, VITAMINS NOS) [Concomitant]
  6. ASPIRIN [Concomitant]

REACTIONS (7)
  - DRUG INTOLERANCE [None]
  - DYSGEUSIA [None]
  - DYSPHAGIA [None]
  - FALL [None]
  - INCORRECT ROUTE OF DRUG ADMINISTRATION [None]
  - MYALGIA [None]
  - THERAPEUTIC RESPONSE UNEXPECTED WITH DRUG SUBSTITUTION [None]
